FAERS Safety Report 7495454-0 (Version None)
Quarter: 2011Q2

REPORT INFORMATION
  Report Type: 
  Country: None (occurrence: None)
  Receive Date: 20110523
  Receipt Date: 20110418
  Transmission Date: 20111010
  Serious: No
  Sender: FDA-Public Use
  Company Number: US-TYCO HEALTHCARE/MALLINCKRODT-T201100798

PATIENT
  Sex: Female
  Weight: 45.805 kg

DRUGS (4)
  1. DILAUDID [Concomitant]
     Indication: BREAKTHROUGH PAIN
     Dosage: 8 MG, QID
  2. OXYCODONE HCL [Concomitant]
     Indication: BREAKTHROUGH PAIN
     Dosage: 30 MG, TID
  3. ADVIL LIQUI-GELS [Concomitant]
     Indication: PAIN
     Dosage: 3 TABS, QID
  4. FENTANYL-100 [Suspect]
     Indication: PAIN
     Dosage: 2 PATCHES Q 24 HRS
     Route: 062
     Dates: start: 20110326

REACTIONS (2)
  - WITHDRAWAL SYNDROME [None]
  - DRUG EFFECT DECREASED [None]
